FAERS Safety Report 20189651 (Version 1)
Quarter: 2021Q4

REPORT INFORMATION
  Report Type: Spontaneous
  Country: CN (occurrence: CN)
  Receive Date: 20211215
  Receipt Date: 20211215
  Transmission Date: 20220304
  Serious: Yes (Other)
  Sender: FDA-Public Use
  Company Number: CN-ELI_LILLY_AND_COMPANY-CN202112005669

PATIENT
  Age: 68 Year
  Sex: Male

DRUGS (2)
  1. PEMETREXED [Suspect]
     Active Substance: PEMETREXED
     Indication: Lung cancer metastatic
     Dosage: 800 MG, UNKNOWN (EVERY 21 DAYS)
     Route: 041
     Dates: start: 20210903, end: 20210929
  2. SINTILIMAB [Suspect]
     Active Substance: SINTILIMAB
     Indication: Lung cancer metastatic
     Dosage: 200 MG, UNKNOWN (EVERY 21 DAYS)
     Route: 041
     Dates: start: 20210903, end: 20210929

REACTIONS (1)
  - Immune-mediated dermatitis [Recovering/Resolving]

NARRATIVE: CASE EVENT DATE: 20211011
